FAERS Safety Report 4977816-6 (Version None)
Quarter: 2006Q2

REPORT INFORMATION
  Report Type: 
  Country: None (occurrence: None)
  Receive Date: 20060420
  Receipt Date: 20060411
  Transmission Date: 20061013
  Serious: Yes (Other)
  Sender: FDA-Public Use
  Company Number: PHNR2006AU00675

PATIENT
  Age: 5 Year

DRUGS (1)
  1. RITALIN [Suspect]

REACTIONS (2)
  - BLOOD PRESSURE [None]
  - CARDIAC FIBRILLATION [None]
